FAERS Safety Report 25013448 (Version 1)
Quarter: 2025Q1

REPORT INFORMATION
  Report Type: Spontaneous
  Country: US (occurrence: US)
  Receive Date: 20250226
  Receipt Date: 20250226
  Transmission Date: 20250408
  Serious: No
  Sender: UCB
  Company Number: US-UCBSA-2024024099

PATIENT
  Age: 59 Year
  Sex: Female

DRUGS (14)
  1. LEVETIRACETAM [Suspect]
     Active Substance: LEVETIRACETAM
     Indication: Partial seizures
  2. LEVETIRACETAM [Suspect]
     Active Substance: LEVETIRACETAM
     Indication: Hashimoto^s encephalopathy
  3. MIDAZOLAM [Suspect]
     Active Substance: MIDAZOLAM
     Indication: Partial seizures
  4. MIDAZOLAM [Suspect]
     Active Substance: MIDAZOLAM
     Indication: Hashimoto^s encephalopathy
  5. PHENYTOIN [Suspect]
     Active Substance: PHENYTOIN
     Indication: Partial seizures
  6. PHENYTOIN [Suspect]
     Active Substance: PHENYTOIN
     Indication: Hashimoto^s encephalopathy
  7. PROPOFOL [Suspect]
     Active Substance: PROPOFOL
     Indication: Partial seizures
  8. PROPOFOL [Suspect]
     Active Substance: PROPOFOL
     Indication: Hashimoto^s encephalopathy
  9. THIAMINE [Suspect]
     Active Substance: THIAMINE
     Indication: Partial seizures
  10. THIAMINE [Suspect]
     Active Substance: THIAMINE
     Indication: Hashimoto^s encephalopathy
  11. DEXAMETHASONE [Concomitant]
     Active Substance: DEXAMETHASONE
     Indication: Aspiration
  12. ACYCLOVIR SODIUM [Concomitant]
     Active Substance: ACYCLOVIR SODIUM
     Indication: Aspiration
  13. CEFTRIAXONE [Concomitant]
     Active Substance: CEFTRIAXONE
     Indication: Aspiration
  14. PIPERACILLIN AND TAZOBACTAM [Concomitant]
     Active Substance: PIPERACILLIN SODIUM\TAZOBACTAM SODIUM
     Indication: Aspiration

REACTIONS (2)
  - Off label use [Unknown]
  - Multiple-drug resistance [Unknown]
